FAERS Safety Report 16926167 (Version 4)
Quarter: 2019Q4

REPORT INFORMATION
  Report Type: Spontaneous
  Country: BR (occurrence: BR)
  Receive Date: 20191016
  Receipt Date: 20191119
  Transmission Date: 20200122
  Serious: Yes (Hospitalization, Other)
  Sender: FDA-Public Use
  Company Number: BR-SA-2019SA153527

PATIENT
  Sex: Female
  Weight: 74 kg

DRUGS (5)
  1. PURAN [Concomitant]
     Active Substance: LEVOTHYROXINE SODIUM
     Indication: HYPOTHYROIDISM
     Dosage: 1 DF, QD
  2. VITAMINS NOS [Concomitant]
     Active Substance: VITAMINS
     Indication: MULTIPLE PREGNANCY
     Dosage: UNKNOWN
     Route: 048
  3. LANTUS [Suspect]
     Active Substance: INSULIN GLARGINE
     Dosage: 16 IU IN THE MORNING AND 6 IU AT NIGHT
     Route: 058
  4. LANTUS [Suspect]
     Active Substance: INSULIN GLARGINE
     Indication: TYPE 1 DIABETES MELLITUS
     Dosage: UNK UNK, BID
     Route: 058
  5. HUMALOG [Concomitant]
     Active Substance: INSULIN LISPRO
     Indication: TYPE 1 DIABETES MELLITUS
     Dosage: 5 OR 6 TIMES A DAY FOR CORRECTION
     Route: 058

REACTIONS (11)
  - Exposure during pregnancy [Unknown]
  - Diabetic metabolic decompensation [Recovering/Resolving]
  - Renal failure [Recovered/Resolved]
  - Swelling [Recovered/Resolved]
  - Premature delivery [Unknown]
  - Hyperglycaemia [Unknown]
  - Pulmonary oedema [Recovered/Resolved]
  - Expired device used [Unknown]
  - Unevaluable event [Recovered/Resolved]
  - Inappropriate schedule of product administration [Unknown]
  - Device issue [Unknown]
